FAERS Safety Report 9224135 (Version 1)
Quarter: 2013Q1

REPORT INFORMATION
  Report Type: Spontaneous
  Country: US (occurrence: US)
  Receive Date: 20120914
  Receipt Date: 20120914
  Transmission Date: 20140127
  Serious: Yes (Other)
  Sender: FDA-Public Use
  Company Number: 2011P1008393

PATIENT
  Age: 57 Year
  Sex: Male
  Weight: 90.72 kg

DRUGS (11)
  1. WARFARIN SODIUM TABLETS USP 5 MG [Suspect]
     Indication: THROMBOSIS
     Route: 048
  2. TRAZODONE [Concomitant]
  3. EFFEXOR XR [Concomitant]
  4. LEVEMIR FLEXPEN [Concomitant]
  5. CARVEDILOL [Concomitant]
  6. PRAVASTATIN [Concomitant]
  7. DEPAKOTE [Concomitant]
  8. BUSPAR [Concomitant]
  9. LORAZEPAM [Concomitant]
  10. GABAPENTIN [Concomitant]
  11. ENOXAPARIN [Concomitant]

REACTIONS (1)
  - International normalised ratio decreased [None]
